FAERS Safety Report 17231634 (Version 1)
Quarter: 2020Q1

REPORT INFORMATION
  Report Type: Spontaneous
  Country: US (occurrence: US)
  Receive Date: 20200103
  Receipt Date: 20200103
  Transmission Date: 20200409
  Serious: No
  Sender: FDA-Public Use
  Company Number: US-BAYER-2019-236026

PATIENT
  Age: 81 Year
  Sex: Female

DRUGS (4)
  1. TRULANCE [Suspect]
     Active Substance: PLECANATIDE
  2. LINZESS [Suspect]
     Active Substance: LINACLOTIDE
  3. CITRATE [Suspect]
     Active Substance: CITRIC ACID MONOHYDRATE
  4. MIRALAX [Suspect]
     Active Substance: POLYETHYLENE GLYCOL 3350
     Indication: COLONOSCOPY
     Route: 048

REACTIONS (10)
  - Constipation [Unknown]
  - Drug ineffective [Unknown]
  - Off label use [Unknown]
  - Insomnia [Unknown]
  - Blood pressure increased [Unknown]
  - Product use in unapproved indication [Unknown]
  - Infrequent bowel movements [Unknown]
  - Dyspepsia [Unknown]
  - Gastrointestinal sounds abnormal [Unknown]
  - Headache [Unknown]
